FAERS Safety Report 10208594 (Version 2)
Quarter: 2014Q2

REPORT INFORMATION
  Report Type: Spontaneous
  Country: FR (occurrence: FR)
  Receive Date: 20140530
  Receipt Date: 20140530
  Transmission Date: 20141212
  Serious: Yes (Disabling)
  Sender: FDA-Public Use
  Company Number: FR-BAYER-2014-018773

PATIENT
  Age: 74 Year
  Sex: Female
  Weight: 67 kg

DRUGS (7)
  1. IZILOX [Suspect]
     Indication: ANGINA PECTORIS
     Dosage: 1 DF, QD
     Route: 048
     Dates: start: 20140106, end: 20140112
  2. TRAMADOL [Concomitant]
     Indication: TREMOR
  3. SPIRONOLACTONE [Concomitant]
  4. RILMENIDINE [Concomitant]
  5. ATORVASTATIN [Concomitant]
  6. LEXOMIL [Concomitant]
  7. ZOLPIDEM [Concomitant]

REACTIONS (4)
  - Back pain [Recovering/Resolving]
  - Pain in extremity [Recovering/Resolving]
  - Peripheral ischaemia [Recovered/Resolved]
  - Off label use [None]
